FAERS Safety Report 23841704 (Version 1)
Quarter: 2024Q2

REPORT INFORMATION
  Report Type: Spontaneous
  Country: US (occurrence: US)
  Receive Date: 20240510
  Receipt Date: 20240510
  Transmission Date: 20240715
  Serious: No
  Sender: FDA-Public Use
  Company Number: US-COLLEGIUM PHARMACEUTICAL, INC.-20240400284

PATIENT

DRUGS (2)
  1. XTAMPZA ER [Suspect]
     Active Substance: OXYCODONE
     Indication: Pain management
     Dosage: 9 MILLIGRAM, BID
     Route: 065
  2. OXYCODONE [Concomitant]
     Active Substance: OXYCODONE\OXYCODONE HYDROCHLORIDE
     Indication: Pain management
     Dosage: 5 MILLIGRAM, UNKNOWN
     Route: 065

REACTIONS (2)
  - Therapeutic product effect variable [Unknown]
  - Circumstance or information capable of leading to medication error [Unknown]
